FAERS Safety Report 9021283 (Version 1)
Quarter: 2013Q1

REPORT INFORMATION
  Report Type: Spontaneous
  Country: US (occurrence: US)
  Receive Date: 20130119
  Receipt Date: 20130119
  Transmission Date: 20140127
  Serious: No
  Sender: FDA-Public Use
  Company Number: US-ALLERGAN-1203148US

PATIENT
  Sex: Female

DRUGS (3)
  1. BOTOX? [Suspect]
     Indication: HYPERHIDROSIS
     Dosage: 60 UNITS, SINGLE
     Route: 030
     Dates: start: 20111219, end: 20111219
  2. BOTOX? [Suspect]
     Dosage: 100 UNITS, SINGLE
     Route: 030
     Dates: start: 20111023, end: 20111023
  3. CONCERTA [Concomitant]
     Indication: ATTENTION DEFICIT/HYPERACTIVITY DISORDER
     Dosage: UNK
     Route: 048

REACTIONS (2)
  - Therapeutic response decreased [Unknown]
  - Drug ineffective [Unknown]
